FAERS Safety Report 21048980 (Version 1)
Quarter: 2022Q3

REPORT INFORMATION
  Report Type: Spontaneous
  Country: JP (occurrence: JP)
  Receive Date: 20220706
  Receipt Date: 20220706
  Transmission Date: 20221026
  Serious: Yes (Hospitalization, Other)
  Sender: FDA-Public Use
  Company Number: JP-MYLANLABS-2022M1050316

PATIENT
  Age: 61 Year
  Sex: Female
  Weight: 65 kg

DRUGS (11)
  1. VERAPAMIL [Interacting]
     Active Substance: VERAPAMIL HYDROCHLORIDE
     Indication: Palpitations
     Dosage: 240 MILLIGRAM
     Route: 048
  2. VERAPAMIL [Interacting]
     Active Substance: VERAPAMIL HYDROCHLORIDE
     Dosage: 1200 MILLIGRAM
     Route: 048
  3. VERAPAMIL [Interacting]
     Active Substance: VERAPAMIL HYDROCHLORIDE
     Dosage: 40 MILLIGRAM
     Route: 048
  4. METOPROLOL [Interacting]
     Active Substance: METOPROLOL
     Indication: Palpitations
     Dosage: 1200 MILLIGRAM
     Route: 048
  5. METOPROLOL [Interacting]
     Active Substance: METOPROLOL
     Dosage: 240 MILLIGRAM
     Route: 048
  6. METOPROLOL [Interacting]
     Active Substance: METOPROLOL
     Dosage: 120 MILLIGRAM
     Route: 048
  7. CARBIMAZOLE [Concomitant]
     Active Substance: CARBIMAZOLE
     Dosage: 5 MILLIGRAM, QD
     Route: 065
  8. AMLODIPINE BESYLATE [Concomitant]
     Active Substance: AMLODIPINE BESYLATE
     Dosage: 5 MILLIGRAM, QD
     Route: 065
  9. ROSUVASTATIN [Concomitant]
     Active Substance: ROSUVASTATIN
     Dosage: 5 MILLIGRAM
     Route: 065
  10. ETIZOLAM [Concomitant]
     Active Substance: ETIZOLAM
     Dosage: 0.5 MILLIGRAM
     Route: 065
  11. TRIAZOLAM [Concomitant]
     Active Substance: TRIAZOLAM
     Dosage: 0.25 MILLIGRAM
     Route: 065

REACTIONS (5)
  - Cardiogenic shock [Recovering/Resolving]
  - Cardiac arrest [Recovering/Resolving]
  - Drug interaction [Unknown]
  - Overdose [Unknown]
  - Off label use [Unknown]
